FAERS Safety Report 6343184-0 (Version None)
Quarter: 2009Q3

REPORT INFORMATION
  Report Type: 
  Country: None (occurrence: None)
  Receive Date: 20090908
  Receipt Date: 20090827
  Transmission Date: 20100115
  Serious: Yes (Hospitalization)
  Sender: FDA-Public Use
  Company Number: US-BAYER-200918358NA

PATIENT
  Age: 36 Year
  Sex: Male

DRUGS (2)
  1. CAMPATH [Suspect]
     Indication: MULTIPLE SCLEROSIS
     Dosage: TOTAL DAILY DOSE: 24 MG
     Route: 042
     Dates: start: 20090217, end: 20090221
  2. SOLU-MEDROL [Concomitant]
     Dosage: 5 DAYS AT HOME

REACTIONS (10)
  - ASTHENIA [None]
  - DIZZINESS [None]
  - DYSPNOEA [None]
  - DYSSTASIA [None]
  - FATIGUE [None]
  - HEMIPARESIS [None]
  - HOT FLUSH [None]
  - MUSCLE SPASMS [None]
  - PERIPHERAL COLDNESS [None]
  - URINARY INCONTINENCE [None]
